FAERS Safety Report 7758391-X (Version None)
Quarter: 2011Q3

REPORT INFORMATION
  Report Type: 
  Country: None (occurrence: None)
  Receive Date: 20110919
  Receipt Date: 20110912
  Transmission Date: 20111222
  Serious: Yes (Disabling, Other)
  Sender: FDA-Public Use
  Company Number: US-PFIZER INC-2011214577

PATIENT
  Age: 16 Year
  Sex: Male

DRUGS (1)
  1. ZYVOX [Suspect]
     Indication: SINUSITIS BACTERIAL
     Dosage: UNK
     Dates: start: 20110101, end: 20110101

REACTIONS (1)
  - OPTIC NEUROPATHY [None]
